FAERS Safety Report 8493346-1 (Version None)
Quarter: 2012Q3

REPORT INFORMATION
  Report Type: 
  Country: None (occurrence: None)
  Receive Date: 20120706
  Receipt Date: 20120628
  Transmission Date: 20120928
  Serious: Yes (Other)
  Sender: FDA-Public Use
  Company Number: US-ELI_LILLY_AND_COMPANY-US201206009641

PATIENT
  Sex: Male

DRUGS (2)
  1. CIALIS [Suspect]
     Dosage: 20 MG, UNK
  2. CIALIS [Suspect]
     Indication: ERECTILE DYSFUNCTION
     Dosage: 10 MG, PRN
     Dates: start: 20120623, end: 20120623

REACTIONS (8)
  - VISUAL IMPAIRMENT [None]
  - BACK PAIN [None]
  - LACRIMATION INCREASED [None]
  - PYREXIA [None]
  - URINARY INCONTINENCE [None]
  - CONFUSIONAL STATE [None]
  - ASTHENIA [None]
  - EYE IRRITATION [None]
